FAERS Safety Report 6728508-4 (Version None)
Quarter: 2010Q2

REPORT INFORMATION
  Report Type: 
  Country: None (occurrence: None)
  Receive Date: 20100517
  Receipt Date: 20100512
  Transmission Date: 20101027
  Serious: Yes (Other)
  Sender: FDA-Public Use
  Company Number: MY-PFIZER INC-2010059401

PATIENT
  Age: 41 Year
  Sex: Male

DRUGS (2)
  1. CELEBREX [Suspect]
     Indication: PROCEDURAL PAIN
     Dosage: 400 MG, UNK
     Route: 048
     Dates: start: 20100509, end: 20100509
  2. PARACETAMOL [Concomitant]
     Indication: PROCEDURAL PAIN
     Dosage: UNK

REACTIONS (2)
  - HAEMATOMA [None]
  - SWELLING [None]
